FAERS Safety Report 20200101 (Version 1)
Quarter: 2021Q4

REPORT INFORMATION
  Report Type: Spontaneous
  Country: GB (occurrence: GB)
  Receive Date: 20211217
  Receipt Date: 20211217
  Transmission Date: 20220303
  Serious: Yes (Hospitalization, Disabling)
  Sender: FDA-Public Use
  Company Number: GB-MYLANLABS-2021M1093652

PATIENT
  Age: 65 Year
  Sex: Female

DRUGS (24)
  1. CIPROFLOXACIN [Suspect]
     Active Substance: CIPROFLOXACIN
     Indication: Endophthalmitis
     Dosage: UNK
     Route: 061
  2. CIPROFLOXACIN [Suspect]
     Active Substance: CIPROFLOXACIN
     Indication: Serratia infection
  3. CIPROFLOXACIN [Suspect]
     Active Substance: CIPROFLOXACIN
     Indication: Endophthalmitis
     Dosage: UNK
     Route: 048
  4. CIPROFLOXACIN [Suspect]
     Active Substance: CIPROFLOXACIN
     Indication: Serratia infection
  5. CEFTAZIDIME [Suspect]
     Active Substance: CEFTAZIDIME
     Indication: Endophthalmitis
     Dosage: BOTH EYES
  6. CEFTAZIDIME [Suspect]
     Active Substance: CEFTAZIDIME
     Indication: Serratia infection
  7. CEFTAZIDIME [Suspect]
     Active Substance: CEFTAZIDIME
     Indication: Endophthalmitis
     Dosage: UNK, Q2H
     Route: 061
  8. CEFTAZIDIME [Suspect]
     Active Substance: CEFTAZIDIME
     Indication: Serratia infection
  9. AMIKACIN [Suspect]
     Active Substance: AMIKACIN
     Indication: Endophthalmitis
     Dosage: UNK
  10. AMIKACIN [Suspect]
     Active Substance: AMIKACIN
     Indication: Serratia infection
  11. DEXAMETHASONE [Suspect]
     Active Substance: DEXAMETHASONE
     Indication: Endophthalmitis
     Dosage: UNK
  12. DEXAMETHASONE [Suspect]
     Active Substance: DEXAMETHASONE
     Indication: Serratia infection
  13. MEROPENEM [Concomitant]
     Active Substance: MEROPENEM
     Indication: Serratia infection
     Dosage: UNK
     Route: 042
  14. GENTAMICIN [Concomitant]
     Active Substance: GENTAMICIN
     Indication: Serratia infection
     Dosage: UNK
     Route: 065
  15. ACETAZOLAMIDE [Concomitant]
     Active Substance: ACETAZOLAMIDE
     Indication: Intraocular pressure increased
     Dosage: UNK
     Route: 048
  16. ACETAZOLAMIDE [Concomitant]
     Active Substance: ACETAZOLAMIDE
     Indication: Inflammation
  17. MANNITOL [Concomitant]
     Active Substance: MANNITOL
     Indication: Intraocular pressure increased
     Dosage: UNK
     Route: 042
  18. MANNITOL [Concomitant]
     Active Substance: MANNITOL
     Indication: Inflammation
  19. LATANOPROST [Concomitant]
     Active Substance: LATANOPROST
     Indication: Intraocular pressure increased
     Dosage: UNK
     Route: 061
  20. LATANOPROST [Concomitant]
     Active Substance: LATANOPROST
     Indication: Inflammation
  21. APRACLONIDINE [Concomitant]
     Active Substance: APRACLONIDINE HYDROCHLORIDE
     Indication: Intraocular pressure increased
     Dosage: UNK
     Route: 061
  22. APRACLONIDINE [Concomitant]
     Active Substance: APRACLONIDINE HYDROCHLORIDE
     Indication: Inflammation
  23. PREDNISOLONE [Concomitant]
     Active Substance: PREDNISOLONE
     Indication: Intraocular pressure increased
     Dosage: UNK
     Route: 061
  24. PREDNISOLONE [Concomitant]
     Active Substance: PREDNISOLONE
     Indication: Inflammation

REACTIONS (1)
  - Drug ineffective [Unknown]
